FAERS Safety Report 17745857 (Version 5)
Quarter: 2020Q3

REPORT INFORMATION
  Report Type: Spontaneous
  Country: US (occurrence: US)
  Receive Date: 20200505
  Receipt Date: 20200731
  Transmission Date: 20201102
  Serious: No
  Sender: FDA-Public Use
  Company Number: US-BIOGEN-2020BI00870915

PATIENT
  Sex: Female

DRUGS (11)
  1. AMANTADINE. [Concomitant]
     Active Substance: AMANTADINE HYDROCHLORIDE
     Dosage: STARTED 6 YEARS AGO
     Route: 065
  2. GABAPENTIN. [Concomitant]
     Active Substance: GABAPENTIN
     Dosage: STARTED IN 2009 OR 2010
     Route: 065
  3. AMPYRA [Suspect]
     Active Substance: DALFAMPRIDINE
     Route: 065
  4. TYSABRI [Suspect]
     Active Substance: NATALIZUMAB
     Route: 065
     Dates: start: 20151022, end: 20170417
  5. BACLOFEN. [Concomitant]
     Active Substance: BACLOFEN
     Indication: PAIN
     Dosage: STARTED IN 2009 OR 2008
     Route: 065
  6. FOSAMAX [Concomitant]
     Active Substance: ALENDRONATE SODIUM
     Route: 065
     Dates: start: 2004
  7. FLUOXETINE HCL [Concomitant]
     Active Substance: FLUOXETINE HYDROCHLORIDE
     Indication: DEPRESSION
     Dosage: STARTED IN 2009 OR 2010
     Route: 065
  8. BIO D MULSION [Concomitant]
     Indication: GASTRIC DISORDER
     Route: 065
     Dates: start: 200701
  9. OXYBUTYNIN. [Concomitant]
     Active Substance: OXYBUTYNIN CHLORIDE
     Dosage: STARTED IN 2009 OR 2010
     Route: 065
  10. TYSABRI [Suspect]
     Active Substance: NATALIZUMAB
     Indication: MULTIPLE SCLEROSIS
     Dosage: STARTED IN 2008 OR 2009 (2?3 YEARS PRIOR TO 2011)
     Route: 065
  11. AMPYRA [Suspect]
     Active Substance: DALFAMPRIDINE
     Indication: GAIT DISTURBANCE
     Dosage: STARTED IN 2009 OR 2010
     Route: 065
     Dates: end: 20200525

REACTIONS (10)
  - Ligament sprain [Unknown]
  - Therapeutic product effect variable [Unknown]
  - Drug ineffective [Unknown]
  - Expired product administered [Unknown]
  - Peripheral coldness [Not Recovered/Not Resolved]
  - Therapy cessation [Unknown]
  - Fall [Unknown]
  - Balance disorder [Unknown]
  - Confusional state [Not Recovered/Not Resolved]
  - Coordination abnormal [Unknown]
